FAERS Safety Report 5129966-1 (Version None)
Quarter: 2006Q4

REPORT INFORMATION
  Report Type: 
  Country: None (occurrence: None)
  Receive Date: 20061013
  Receipt Date: 20060926
  Transmission Date: 20070319
  Serious: Yes (Other)
  Sender: FDA-Public Use
  Company Number: JP_031202402

PATIENT
  Age: 55 Year
  Sex: Female

DRUGS (5)
  1. ZYPREXA [Suspect]
     Indication: CATATONIA
     Dosage: 20 MG, DAILY (1/D), ORAL
     Route: 048
  2. HIRNAMIN (LEVOMEPROMAZINE) [Concomitant]
  3. ZOLPIDEM TARTRATE [Concomitant]
  4. ROHIPNOL (FLUNITRAZEPAM) [Concomitant]
  5. ALACEPRIL (ALACEPRIL) [Concomitant]

REACTIONS (13)
  - AGITATION [None]
  - ALANINE AMINOTRANSFERASE INCREASED [None]
  - ASPARTATE AMINOTRANSFERASE INCREASED [None]
  - COMMUNICATION DISORDER [None]
  - DELUSION [None]
  - DIET REFUSAL [None]
  - DISINHIBITION [None]
  - DRUG INEFFECTIVE [None]
  - HALLUCINATION [None]
  - HEPATIC FUNCTION ABNORMAL [None]
  - NEGATIVISM [None]
  - THINKING ABNORMAL [None]
  - TREATMENT NONCOMPLIANCE [None]
